FAERS Safety Report 8530431-X (Version None)
Quarter: 2012Q3

REPORT INFORMATION
  Report Type: 
  Country: None (occurrence: None)
  Receive Date: 20120723
  Receipt Date: 20120718
  Transmission Date: 20120928
  Serious: Yes (Death, Life-Threatening, Hospitalization)
  Sender: FDA-Public Use
  Company Number: JP-SANOFI-AVENTIS-200911133JP

PATIENT
  Age: 77 Year
  Sex: Male
  Weight: 63.5 kg

DRUGS (7)
  1. LANIRAPID [Concomitant]
  2. CARBOPLATIN [Concomitant]
     Indication: PROSTATE CANCER
     Dosage: AREA UNDER THE CURVE OF 5 ON DAY 1
     Route: 042
     Dates: start: 20070813, end: 20070813
  3. ISOSORBIDE MONONITRATE [Concomitant]
  4. DEXAMETHASONE [Concomitant]
     Dosage: 30 MIN PRIOR TO EACH DOCETAXEL INFUSION
     Route: 042
  5. LUTEINIZING HORMONE-RELEASING HORMONE [Concomitant]
  6. FLEMPHYLINE [Concomitant]
  7. DOCETAXEL [Suspect]
     Route: 041
     Dates: start: 20070813, end: 20070813

REACTIONS (3)
  - PNEUMONIA ASPIRATION [None]
  - PNEUMONIA [None]
  - NEUTROPENIA [None]
